FAERS Safety Report 11516467 (Version 1)
Quarter: 2015Q3

REPORT INFORMATION
  Report Type: Spontaneous
  Country: US (occurrence: US)
  Receive Date: 20150917
  Receipt Date: 20150917
  Transmission Date: 20151125
  Serious: No
  Sender: FDA-Public Use
  Company Number: US-PFIZER INC-2015307149

PATIENT
  Age: 56 Year
  Sex: Female

DRUGS (1)
  1. ZITHROMAX [Suspect]
     Active Substance: AZITHROMYCIN DIHYDRATE
     Indication: INFLUENZA LIKE ILLNESS
     Dosage: 6 DF, DAILY
     Dates: start: 20120904, end: 201209

REACTIONS (3)
  - Asthenia [Recovered/Resolved]
  - Drug effect incomplete [Unknown]
  - Sinus congestion [Recovered/Resolved]

NARRATIVE: CASE EVENT DATE: 20120904
